FAERS Safety Report 5899524-X (Version None)
Quarter: 2008Q3

REPORT INFORMATION
  Report Type: 
  Country: None (occurrence: None)
  Receive Date: 20080924
  Receipt Date: 20080911
  Transmission Date: 20090109
  Serious: Yes (Other)
  Sender: FDA-Public Use
  Company Number: WAES 0809USA02119

PATIENT
  Age: 70 Year
  Sex: Female

DRUGS (2)
  1. METHYLDOPA [Suspect]
     Dosage: 500 MG/DAILY, PO, 750 MG/DAILY, PO
     Route: 048
     Dates: start: 20080904, end: 20080101
  2. [THERAPY UNSPECIFIED] [Concomitant]

REACTIONS (3)
  - CONDITION AGGRAVATED [None]
  - DEAFNESS [None]
  - DYSGEUSIA [None]
